FAERS Safety Report 13090356 (Version 1)
Quarter: 2017Q1

REPORT INFORMATION
  Report Type: Spontaneous
  Country: US (occurrence: US)
  Receive Date: 20170105
  Receipt Date: 20170105
  Transmission Date: 20170428
  Serious: No
  Sender: FDA-Public Use
  Company Number: US-ENDO PHARMACEUTICALS INC.-2016-000544

PATIENT
  Age: 92 Year
  Sex: Male
  Weight: 88.53 kg

DRUGS (3)
  1. TESTOSTERONE GEL [Suspect]
     Active Substance: TESTOSTERONE
     Route: 061
     Dates: start: 2015, end: 20160101
  2. TESTOSTERONE GEL [Suspect]
     Active Substance: TESTOSTERONE
     Route: 061
     Dates: start: 20160102
  3. TESTOSTERONE GEL [Suspect]
     Active Substance: TESTOSTERONE
     Indication: BLOOD TESTOSTERONE DECREASED
     Route: 061
     Dates: start: 2014, end: 2015

REACTIONS (4)
  - Application site exfoliation [Unknown]
  - Skin wrinkling [Recovering/Resolving]
  - Drug administered at inappropriate site [Recovered/Resolved]
  - Application site erythema [Recovering/Resolving]

NARRATIVE: CASE EVENT DATE: 2014
